FAERS Safety Report 8421931-1 (Version None)
Quarter: 2012Q2

REPORT INFORMATION
  Report Type: 
  Country: None (occurrence: None)
  Receive Date: 20120608
  Receipt Date: 20120601
  Transmission Date: 20120825
  Serious: Yes (Other)
  Sender: FDA-Public Use
  Company Number: PHHY2012GB047042

PATIENT
  Age: 72 Year
  Sex: Female
  Weight: 51 kg

DRUGS (7)
  1. INSULIN [Concomitant]
  2. LISINOPRIL [Concomitant]
  3. ASPIRIN [Concomitant]
  4. INDAPAMIDE [Suspect]
     Indication: HYPERTENSION
     Dosage: 2.5 MG, QD
     Route: 048
     Dates: start: 20120514, end: 20120520
  5. DIPYRIDAMOLE [Concomitant]
  6. SIMVASTATIN [Concomitant]
  7. AMLODIPINE [Concomitant]

REACTIONS (2)
  - HYPONATRAEMIA [None]
  - SYNCOPE [None]
